FAERS Safety Report 6380410-6 (Version None)
Quarter: 2009Q3

REPORT INFORMATION
  Report Type: 
  Country: None (occurrence: None)
  Receive Date: 20090929
  Receipt Date: 20090918
  Transmission Date: 20100115
  Serious: Yes (Life-Threatening, Other)
  Sender: FDA-Public Use
  Company Number: DK-JNJFOC-20090403805

PATIENT
  Sex: Male
  Weight: 62 kg

DRUGS (7)
  1. REMICADE [Suspect]
     Dosage: 0,2,6 AND 8 WEEKS
     Route: 042
     Dates: start: 20080218, end: 20090612
  2. REMICADE [Suspect]
     Indication: ANKYLOSING SPONDYLITIS
     Dosage: 0,2,6 AND 8 WEEKS
     Route: 042
     Dates: start: 20080218, end: 20090612
  3. DICLOFENAC [Concomitant]
     Route: 048
  4. PAMOL [Concomitant]
     Route: 048
  5. METHOTREXATE [Concomitant]
     Route: 048
  6. ISONIAZID [Concomitant]
     Route: 048
  7. PYRIDOXIN [Concomitant]
     Route: 048

REACTIONS (1)
  - TUBERCULOSIS [None]
